FAERS Safety Report 12981946 (Version 2)
Quarter: 2017Q1

REPORT INFORMATION
  Report Type: Not Available
  Country: GB (occurrence: GB)
  Receive Date: 20161129
  Receipt Date: 20170105
  Transmission Date: 20170428
  Serious: Yes (Death)
  Sender: FDA-Public Use
  Company Number: GB-PURDUE-GBR-2016-0041883

PATIENT
  Age: 68 Year
  Sex: Female
  Weight: 93 kg

DRUGS (14)
  1. ATRACURIUM [Suspect]
     Active Substance: ATRACURIUM
     Indication: HYPOTONIA
     Dosage: 50 MG, UNK
     Route: 042
     Dates: start: 20160929, end: 20160929
  2. MORPHINE SULFATE. [Suspect]
     Active Substance: MORPHINE SULFATE
     Indication: PERIOPERATIVE ANALGESIA
     Dosage: 4 MG, UNK
     Route: 042
     Dates: start: 20160929, end: 20160929
  3. CEFUROXIME. [Suspect]
     Active Substance: CEFUROXIME
     Indication: SURGERY
     Dosage: 1.5 G, UNK
     Route: 042
     Dates: start: 20160929, end: 20160929
  4. CLOPIDOGREL [Concomitant]
     Active Substance: CLOPIDOGREL BISULFATE
  5. METFORMIN [Concomitant]
     Active Substance: METFORMIN HYDROCHLORIDE
  6. TEICOPLANIN [Suspect]
     Active Substance: TEICOPLANIN
     Indication: SURGERY
     Dosage: 400 MG, UNK
     Route: 042
     Dates: start: 20160929, end: 20160929
  7. PARACETAMOL [Concomitant]
     Active Substance: ACETAMINOPHEN
  8. PHENYLEPHRINE [Suspect]
     Active Substance: PHENYLEPHRINE\PHENYLEPHRINE HYDROCHLORIDE
     Indication: BLOOD PRESSURE DECREASED
     Dosage: UNK
     Route: 042
     Dates: start: 20160929, end: 20160929
  9. TEICOPLANIN [Suspect]
     Active Substance: TEICOPLANIN
     Indication: PROPHYLAXIS
  10. GABAPENTIN. [Concomitant]
     Active Substance: GABAPENTIN
  11. LISINOPRIL. [Concomitant]
     Active Substance: LISINOPRIL
  12. PROPOFOL. [Suspect]
     Active Substance: PROPOFOL
     Indication: GENERAL ANAESTHESIA
     Dosage: 130 MG, UNK
     Route: 042
     Dates: start: 20160929, end: 20160929
  13. CODEINE [Concomitant]
     Active Substance: CODEINE
  14. CEFUROXIME. [Suspect]
     Active Substance: CEFUROXIME
     Indication: PROPHYLAXIS

REACTIONS (5)
  - Hypotension [Fatal]
  - Cardiac arrest [Fatal]
  - Myocardial infarction [Fatal]
  - Arteriospasm coronary [Fatal]
  - Pulseless electrical activity [Fatal]

NARRATIVE: CASE EVENT DATE: 20160929
